FAERS Safety Report 8157647-9 (Version None)
Quarter: 2012Q1

REPORT INFORMATION
  Report Type: 
  Country: None (occurrence: None)
  Receive Date: 20120217
  Receipt Date: 20120214
  Transmission Date: 20120608
  Serious: Yes (Hospitalization, Other)
  Sender: FDA-Public Use
  Company Number: 2009SP020292

PATIENT
  Age: 29 Year
  Sex: Female
  Weight: 72.5755 kg

DRUGS (1)
  1. NUVARING [Suspect]
     Indication: CONTRACEPTION
     Dates: start: 20060322, end: 20070224

REACTIONS (16)
  - NEPHROLITHIASIS [None]
  - CATHETER SITE SWELLING [None]
  - RIGHT VENTRICULAR FAILURE [None]
  - CAESAREAN SECTION [None]
  - HEPARIN-INDUCED THROMBOCYTOPENIA [None]
  - PULMONARY EMBOLISM [None]
  - SUPRAVENTRICULAR TACHYCARDIA [None]
  - ECCHYMOSIS [None]
  - CONTUSION [None]
  - CARDIOGENIC SHOCK [None]
  - CARDIAC SEPTAL DEFECT [None]
  - RETROPERITONEAL HAEMATOMA [None]
  - DEEP VEIN THROMBOSIS [None]
  - MATERNAL EXPOSURE DURING PREGNANCY [None]
  - ATELECTASIS [None]
  - HELLP SYNDROME [None]
